FAERS Safety Report 5219674-0 (Version None)
Quarter: 2006Q4

REPORT INFORMATION
  Report Type: 
  Country: None (occurrence: None)
  Receive Date: 20061121
  Receipt Date: 20060905
  Transmission Date: 20070319
  Serious: No
  Sender: FDA-Public Use
  Company Number: TPA2006A01512

PATIENT
  Age: 44 Year
  Sex: Female
  Weight: 51.7101 kg

DRUGS (2)
  1. ROZEREM [Suspect]
     Indication: INSOMNIA
     Dosage: 8 MG, 2 TABS HS, PER ORAL
     Route: 048
     Dates: start: 20060829
  2. LITHIUM CARBONATE [Concomitant]

REACTIONS (4)
  - MIDDLE INSOMNIA [None]
  - PRESCRIBED OVERDOSE [None]
  - SLUGGISHNESS [None]
  - THERAPEUTIC RESPONSE INCREASED [None]
